FAERS Safety Report 12263745 (Version 2)
Quarter: 2016Q2

REPORT INFORMATION
  Report Type: Spontaneous
  Country: US (occurrence: US)
  Receive Date: 20160413
  Receipt Date: 20160511
  Transmission Date: 20160815
  Serious: No
  Sender: FDA-Public Use
  Company Number: PHEH2016US008902

PATIENT

DRUGS (1)
  1. SANDOSTATIN LAR DEPOT [Suspect]
     Active Substance: OCTREOTIDE ACETATE
     Indication: PRODUCT USED FOR UNKNOWN INDICATION
     Dosage: 30 MG, QMO (EVERY 28 DAYS)
     Route: 030
     Dates: start: 20160408

REACTIONS (3)
  - Syringe issue [Unknown]
  - Device occlusion [None]
  - Incorrect dose administered by device [None]

NARRATIVE: CASE EVENT DATE: 20160408
